FAERS Safety Report 12384413 (Version 3)
Quarter: 2017Q4

REPORT INFORMATION
  Report Type: Report from Study
  Country: BR (occurrence: BR)
  Receive Date: 20160519
  Receipt Date: 20171106
  Transmission Date: 20180320
  Serious: Yes (Hospitalization)
  Sender: FDA-Public Use
  Company Number: BR-ROCHE-1660464

PATIENT
  Age: 73 Year
  Sex: Male
  Weight: 65 kg

DRUGS (9)
  1. CALCIUM CARBONATE. [Concomitant]
     Active Substance: CALCIUM CARBONATE
     Route: 065
     Dates: start: 20130713
  2. SODIUM CARBONATE [Concomitant]
     Active Substance: SODIUM CARBONATE
     Route: 065
     Dates: start: 20130821
  3. EPOETIN BETA [Suspect]
     Active Substance: ERYTHROPOIETIN
     Dosage: RESTARTED ON 05/MAY/2016
     Route: 058
     Dates: start: 20160505
  4. EPOETIN BETA [Suspect]
     Active Substance: ERYTHROPOIETIN
     Dosage: TEMPORARILY INTERRUPTED ON 11/NOV/2015
     Route: 058
     Dates: start: 20151111
  5. FUROSEMIDE. [Concomitant]
     Active Substance: FUROSEMIDE
     Route: 065
     Dates: start: 20131005
  6. AZELAIC ACID. [Concomitant]
     Active Substance: AZELAIC ACID
     Route: 065
     Dates: start: 20150605
  7. EPOETIN BETA [Suspect]
     Active Substance: ERYTHROPOIETIN
     Indication: NEPHROGENIC ANAEMIA
     Route: 058
     Dates: start: 20100505
  8. EPOETIN BETA [Suspect]
     Active Substance: ERYTHROPOIETIN
     Dosage: LAST DOSE PRIOR TO SAE - 03/NOV/2015
     Route: 058
     Dates: start: 20151103
  9. MYCOPHENOLATE MOFETIL. [Suspect]
     Active Substance: MYCOPHENOLATE MOFETIL
     Indication: PRODUCT USED FOR UNKNOWN INDICATION
     Route: 065
     Dates: start: 20140805

REACTIONS (1)
  - Anaemia [Recovered/Resolved]

NARRATIVE: CASE EVENT DATE: 20151105
